FAERS Safety Report 6409647-4 (Version None)
Quarter: 2009Q4

REPORT INFORMATION
  Report Type: 
  Country: None (occurrence: None)
  Receive Date: 20091022
  Receipt Date: 20091015
  Transmission Date: 20100525
  Serious: Yes (Hospitalization, Other)
  Sender: FDA-Public Use
  Company Number: US-PURDUE-USA_2008_0032349

PATIENT
  Sex: Female

DRUGS (13)
  1. OXYCONTIN [Suspect]
     Indication: BACK DISORDER
     Dosage: 80 MG, SEE TEXT
     Route: 048
  2. OXYCONTIN [Suspect]
     Indication: PAIN
  3. ALCOHOL                            /00002101/ [Suspect]
     Indication: ALCOHOL ABUSE
     Route: 048
  4. LORTAB [Suspect]
     Indication: DRUG USE FOR UNKNOWN INDICATION
     Dosage: 7.5 MG, TID
     Route: 048
  5. OXYCODONE HCL [Suspect]
     Indication: DRUG USE FOR UNKNOWN INDICATION
  6. SEROQUEL [Concomitant]
     Indication: DRUG USE FOR UNKNOWN INDICATION
     Dosage: 175 MG, DAILY
     Route: 048
  7. PERIACTIN [Concomitant]
     Indication: DRUG USE FOR UNKNOWN INDICATION
     Dosage: UNK, TID
     Route: 048
  8. PAXIL [Concomitant]
     Indication: DRUG USE FOR UNKNOWN INDICATION
     Dosage: 40 MG, DAILY
     Route: 048
  9. ATIVAN [Concomitant]
  10. DURAGESIC-100 [Concomitant]
  11. REMERON [Concomitant]
  12. NEURONTIN [Concomitant]
  13. LEVAQUIN [Concomitant]

REACTIONS (15)
  - ALCOHOL WITHDRAWAL SYNDROME [None]
  - ALCOHOLISM [None]
  - ANHEDONIA [None]
  - ANXIETY [None]
  - DRUG DEPENDENCE [None]
  - DRUG EFFECT DECREASED [None]
  - DRUG TOLERANCE [None]
  - DRUG WITHDRAWAL SYNDROME [None]
  - GENERAL PHYSICAL HEALTH DETERIORATION [None]
  - HEPATOTOXICITY [None]
  - INTENTIONAL DRUG MISUSE [None]
  - MOOD SWINGS [None]
  - PAIN [None]
  - PERSONALITY CHANGE [None]
  - SUBSTANCE ABUSE [None]
